FAERS Safety Report 19611244 (Version 1)
Quarter: 2021Q3

REPORT INFORMATION
  Report Type: Spontaneous
  Country: US (occurrence: US)
  Receive Date: 20210726
  Receipt Date: 20210726
  Transmission Date: 20211014
  Serious: No
  Sender: FDA-Public Use
  Company Number: NVSC2021US167650

PATIENT

DRUGS (2)
  1. TAFINLAR COMBO [Suspect]
     Active Substance: DABRAFENIB\TRAMETINIB
     Indication: BRAF V600E MUTATION POSITIVE
     Dosage: 150 MG, BID (MILLIGRAM)
     Route: 048
  2. MEKINIST [Suspect]
     Active Substance: TRAMETINIB DIMETHYL SULFOXIDE
     Indication: BRAF V600E MUTATION POSITIVE
     Dosage: 2 MG, QD (MILLIGRAM)
     Route: 048

REACTIONS (1)
  - Pyrexia [Unknown]
